FAERS Safety Report 19367930 (Version 1)
Quarter: 2021Q2

REPORT INFORMATION
  Report Type: Spontaneous
  Country: JP (occurrence: JP)
  Receive Date: 20210603
  Receipt Date: 20210603
  Transmission Date: 20210717
  Serious: Yes (Other)
  Sender: FDA-Public Use
  Company Number: JP-JNJFOC-20210548895

PATIENT
  Age: 78 Year
  Sex: Male

DRUGS (1)
  1. RIUP 1% [Suspect]
     Active Substance: MINOXIDIL
     Indication: ANDROGENETIC ALOPECIA
     Route: 065

REACTIONS (1)
  - Meniere^s disease [Unknown]
